FAERS Safety Report 9438468 (Version 2)
Quarter: 2014Q2

REPORT INFORMATION
  Report Type: Spontaneous
  Country: US (occurrence: US)
  Receive Date: 20130802
  Receipt Date: 20140530
  Transmission Date: 20141212
  Serious: Yes (Hospitalization, Disabling, Other)
  Sender: FDA-Public Use
  Company Number: US-009507513-1307USA017153

PATIENT
  Sex: Female
  Weight: 95.24 kg

DRUGS (5)
  1. NUVARING [Suspect]
     Indication: CONTRACEPTION
     Dosage: UNK
     Route: 067
     Dates: start: 201111, end: 20120129
  2. NUVARING [Suspect]
     Indication: MENSTRUATION IRREGULAR
  3. ZOLOFT [Concomitant]
     Indication: DEPRESSION
     Dosage: 50 MG, QD
     Route: 048
  4. COUMADIN [Suspect]
     Indication: PULMONARY EMBOLISM
     Dosage: UNK
     Dates: start: 20120129
  5. COUMADIN [Suspect]
     Indication: DEEP VEIN THROMBOSIS

REACTIONS (23)
  - Cholecystectomy [Unknown]
  - Pulmonary embolism [Unknown]
  - Coagulopathy [Unknown]
  - Deep vein thrombosis [Unknown]
  - Gallbladder disorder [Unknown]
  - Off label use [Unknown]
  - Depression [Unknown]
  - Anxiety [Unknown]
  - Back pain [Unknown]
  - Nausea [Unknown]
  - Cerebral ischaemia [Unknown]
  - Demyelination [Unknown]
  - Infection [Unknown]
  - Leukocytosis [Unknown]
  - Headache [Recovered/Resolved]
  - Gingival bleeding [Recovered/Resolved]
  - Increased tendency to bruise [Unknown]
  - Palpitations [Unknown]
  - Muscular weakness [Unknown]
  - Muscle twitching [Unknown]
  - Paraesthesia [Unknown]
  - Cardiac flutter [Unknown]
  - Chest pain [Unknown]
